FAERS Safety Report 9521170 (Version 1)
Quarter: 2013Q3

REPORT INFORMATION
  Report Type: Spontaneous
  Country: US (occurrence: None)
  Receive Date: 20130911
  Receipt Date: 20130911
  Transmission Date: 20140515
  Serious: Yes (Other)
  Sender: FDA-Public Use
  Company Number: SYM-2013-10392

PATIENT
  Age: 43 Year
  Sex: Male

DRUGS (1)
  1. RIBAVIRIN [Suspect]
     Indication: HEPATITIS C

REACTIONS (14)
  - Pyrexia [None]
  - Chills [None]
  - Hyperhidrosis [None]
  - Fatigue [None]
  - Chest pain [None]
  - Headache [None]
  - Lymphadenopathy [None]
  - Thrombocytopenia [None]
  - Dyspnoea [None]
  - Cough [None]
  - Productive cough [None]
  - Purulence [None]
  - Pneumonia [None]
  - Pulmonary sarcoidosis [None]
